FAERS Safety Report 5280684-9 (Version None)
Quarter: 2007Q1

REPORT INFORMATION
  Report Type: 
  Country: None (occurrence: None)
  Receive Date: 20061218
  Receipt Date: 20060104
  Transmission Date: 20070707
  Serious: Yes (Other)
  Sender: FDA-Public Use
  Company Number: US200601000453

PATIENT
  Age: 52 Year
  Sex: Female

DRUGS (4)
  1. HUMULIN L [Suspect]
     Dates: end: 20030101
  2. HUMULIN R [Suspect]
     Dates: end: 20030101
  3. INSULIN [Suspect]
  4. LANTUS [Concomitant]

REACTIONS (3)
  - BLOOD GLUCOSE FLUCTUATION [None]
  - BLOOD GLUCOSE INCREASED [None]
  - DIABETIC KETOACIDOSIS [None]
